FAERS Safety Report 5484186-6 (Version None)
Quarter: 2007Q4

REPORT INFORMATION
  Report Type: 
  Country: None (occurrence: None)
  Receive Date: 20071009
  Receipt Date: 20071009
  Transmission Date: 20080405
  Serious: Yes (Other)
  Sender: FDA-Public Use
  Company Number: None

PATIENT
  Sex: Male
  Weight: 66.6788 kg

DRUGS (1)
  1. FLUOXETINE [Suspect]
     Indication: MAJOR DEPRESSION
     Dosage: 20 TO 30MG PO QD
     Route: 048

REACTIONS (4)
  - DEPRESSION [None]
  - DISEASE RECURRENCE [None]
  - DRUG INEFFECTIVE [None]
  - THERAPEUTIC RESPONSE UNEXPECTED WITH DRUG SUBSTITUTION [None]
